FAERS Safety Report 14020166 (Version 1)
Quarter: 2017Q3

REPORT INFORMATION
  Report Type: Spontaneous
  Country: US (occurrence: US)
  Receive Date: 20170928
  Receipt Date: 20170928
  Transmission Date: 20171128
  Serious: Yes (Hospitalization, Other)
  Sender: FDA-Public Use
  Company Number: US-ASTRAZENECA-2017SE98812

PATIENT
  Age: 29207 Day
  Sex: Female
  Weight: 66.2 kg

DRUGS (1)
  1. TUDORZA PRESSAIR [Suspect]
     Active Substance: ACLIDINIUM BROMIDE
     Indication: CHRONIC OBSTRUCTIVE PULMONARY DISEASE
     Route: 055
     Dates: start: 20170518, end: 20170924

REACTIONS (7)
  - Visual impairment [Unknown]
  - Clostridium difficile infection [Unknown]
  - Staphylococcal infection [Unknown]
  - Product quality issue [Unknown]
  - Drug dose omission [Unknown]
  - Small intestinal obstruction [Unknown]
  - Pneumonia [Unknown]

NARRATIVE: CASE EVENT DATE: 20170610
